FAERS Safety Report 20039309 (Version 1)
Quarter: 2021Q4

REPORT INFORMATION
  Report Type: Spontaneous
  Country: US (occurrence: US)
  Receive Date: 20211105
  Receipt Date: 20211105
  Transmission Date: 20220304
  Serious: Yes (Death)
  Sender: FDA-Public Use
  Company Number: US-BAYER-2021A243854

PATIENT
  Sex: Female

DRUGS (1)
  1. NEXAVAR [Suspect]
     Active Substance: SORAFENIB
     Indication: Neoplasm malignant
     Dosage: UNK

REACTIONS (2)
  - Aneurysm [Fatal]
  - Artery dissection [Fatal]
